FAERS Safety Report 21304703 (Version 1)
Quarter: 2022Q3

REPORT INFORMATION
  Report Type: Spontaneous
  Country: US (occurrence: None)
  Receive Date: 20220907
  Receipt Date: 20220907
  Transmission Date: 20221027
  Serious: No
  Sender: FDA-Public Use
  Company Number: US-FARMAPROD-202109-1587

PATIENT
  Age: 84 Year
  Sex: Female

DRUGS (14)
  1. OXERVATE [Suspect]
     Active Substance: CENEGERMIN-BKBJ
     Indication: Neurotrophic keratopathy
     Route: 047
     Dates: start: 20210830
  2. OXERVATE [Suspect]
     Active Substance: CENEGERMIN-BKBJ
     Indication: Dry eye
  3. ZIOPTAN [Concomitant]
     Active Substance: TAFLUPROST
     Dosage: DROPERETTE
  4. TRAMADOL HCL [Concomitant]
     Active Substance: TRAMADOL HYDROCHLORIDE
  5. SYSTANE (HYPROMELLOSE 2910 (4000 MPA.S)) [Concomitant]
     Active Substance: HYPROMELLOSE 2910 (4000 MPA.S)
     Dosage: 0.3 %-0.4% DROPERETTE
  6. PRAVASTATIN SODIUM [Concomitant]
     Active Substance: PRAVASTATIN SODIUM
  7. NOVOLOG [Concomitant]
     Active Substance: INSULIN ASPART
     Dosage: 100/ML CARTRIDGE
  8. LEVOTHYROXINE [Concomitant]
     Active Substance: LEVOTHYROXINE
  9. GABAPENTIN [Concomitant]
     Active Substance: GABAPENTIN
  10. ESTRADIOL [Concomitant]
     Active Substance: ESTRADIOL
  11. CLOPIDOGREL [Concomitant]
     Active Substance: CLOPIDOGREL BISULFATE
  12. CARVEDILOL [Concomitant]
     Active Substance: CARVEDILOL
  13. AMLODIPINE BESYLATE [Concomitant]
     Active Substance: AMLODIPINE BESYLATE
  14. SERUM EYE DROPS [Concomitant]

REACTIONS (6)
  - Eye pain [Recovering/Resolving]
  - Ocular discomfort [Unknown]
  - Eye irritation [Unknown]
  - Eye swelling [Unknown]
  - Eye discharge [Recovering/Resolving]
  - Eyelid margin crusting [Recovering/Resolving]

NARRATIVE: CASE EVENT DATE: 20210830
